FAERS Safety Report 5358742-X (Version None)
Quarter: 2007Q2

REPORT INFORMATION
  Report Type: 
  Country: None (occurrence: None)
  Receive Date: 20070615
  Receipt Date: 20070607
  Transmission Date: 20071010
  Serious: Yes (Life-Threatening, Hospitalization)
  Sender: FDA-Public Use
  Company Number: FR-ROCHE-477274

PATIENT
  Age: 58 Year
  Sex: Male
  Weight: 107 kg

DRUGS (16)
  1. VALGANCICLOVIR HCL [Suspect]
     Route: 048
     Dates: start: 20060809, end: 20061002
  2. VALGANCICLOVIR HCL [Suspect]
     Dosage: DISCONTINUED AFTER APPROX 100 DAYS OF VALGANCICLOVIR THERAPY (TOTAL)
     Route: 048
     Dates: start: 20061003
  3. BLINDED VALGANCICLOVIR [Suspect]
     Route: 048
     Dates: end: 20070103
  4. PROGRAF [Concomitant]
     Dates: start: 20060807
  5. CELLCEPT [Concomitant]
     Dates: start: 20060804
  6. SOLUPRED [Concomitant]
     Dates: start: 20060804
  7. MOVICOL [Concomitant]
     Dates: start: 20060804
  8. LASIX [Concomitant]
     Dates: start: 20060823
  9. BACTRIM [Concomitant]
     Dates: start: 20060808
  10. NOVONORM [Concomitant]
  11. GLUCOPHAGE [Concomitant]
     Dates: end: 20060925
  12. VASTEN [Concomitant]
     Dates: start: 20060904
  13. AMLOR [Concomitant]
     Dates: start: 20060925
  14. EUPRESSYL [Concomitant]
     Dates: start: 20061005
  15. ACTOS [Concomitant]
     Dates: start: 20061117
  16. LEXOMIL [Concomitant]
     Dates: start: 20061211

REACTIONS (1)
  - HYPOXIA [None]
